FAERS Safety Report 14284270 (Version 3)
Quarter: 2018Q1

REPORT INFORMATION
  Report Type: Spontaneous
  Country: FR (occurrence: FR)
  Receive Date: 20171214
  Receipt Date: 20180206
  Transmission Date: 20180509
  Serious: Yes (Other)
  Sender: FDA-Public Use
  Company Number: FR-SUN PHARMACEUTICAL INDUSTRIES LTD-2017RR-156869

PATIENT
  Age: 48 Year
  Sex: Male

DRUGS (2)
  1. DAL (DALFAMPRIDINE) [Suspect]
     Active Substance: DALFAMPRIDINE
     Indication: MULTIPLE SCLEROSIS
     Dosage: 10 MG TID
     Route: 065
  2. BACLOFEN. [Suspect]
     Active Substance: BACLOFEN
     Indication: MULTIPLE SCLEROSIS
     Route: 065

REACTIONS (5)
  - Status epilepticus [Unknown]
  - Drug interaction [Unknown]
  - Generalised tonic-clonic seizure [None]
  - Altered state of consciousness [None]
  - Cerebral atrophy [None]
